FAERS Safety Report 8876059 (Version 1)
Quarter: 2012Q4

REPORT INFORMATION
  Report Type: 
  Country: US (occurrence: US)
  Receive Date: 20121023
  Receipt Date: 20121023
  Transmission Date: 20130627
  Serious: No
  Sender: FDA-Public Use
  Company Number: US-ASTRAZENECA-2012SE74934

PATIENT
  Age: 51 Year
  Sex: Male

DRUGS (1)
  1. SEROQUEL [Suspect]
     Route: 048

REACTIONS (4)
  - Bipolar disorder [Unknown]
  - Depression [Unknown]
  - Dyskinesia [Unknown]
  - Drug effect incomplete [Unknown]
